FAERS Safety Report 5342637-1 (Version None)
Quarter: 2007Q2

REPORT INFORMATION
  Report Type: 
  Country: None (occurrence: None)
  Receive Date: 20070416
  Receipt Date: 20070305
  Transmission Date: 20071010
  Serious: No
  Sender: FDA-Public Use
  Company Number: 2007SP000778

PATIENT
  Age: 59 Year
  Sex: Female
  Weight: 122.4712 kg

DRUGS (13)
  1. LUNESTA [Suspect]
     Indication: INSOMNIA
     Dosage: SEE IMAGE
     Route: 048
     Dates: start: 20060101, end: 20060101
  2. LUNESTA [Suspect]
     Indication: INSOMNIA
     Dosage: SEE IMAGE
     Route: 048
     Dates: start: 20060101, end: 20060101
  3. LUNESTA [Suspect]
     Indication: INSOMNIA
     Dosage: SEE IMAGE
     Route: 048
     Dates: start: 20060101, end: 20060101
  4. LUNESTA [Suspect]
     Indication: INSOMNIA
     Dosage: SEE IMAGE
     Route: 048
     Dates: start: 20070101
  5. LAMOTRIGINE [Concomitant]
  6. SEROQUEL [Concomitant]
  7. CLONOPIN [Concomitant]
  8. CALCIUM CHLORIDE [Concomitant]
  9. VITAMIN CAP [Concomitant]
  10. LUTEIN [Concomitant]
  11. ECHINACEA EXTRACT [Concomitant]
  12. AMLODIPINE [Concomitant]
  13. ATORVASTATIN CALCIUM [Concomitant]

REACTIONS (4)
  - DISORIENTATION [None]
  - INITIAL INSOMNIA [None]
  - PARANOIA [None]
  - VISION BLURRED [None]
